FAERS Safety Report 4811160-2 (Version None)
Quarter: 2005Q4

REPORT INFORMATION
  Report Type: 
  Country: None (occurrence: None)
  Receive Date: 20051025
  Receipt Date: 20050628
  Transmission Date: 20060501
  Serious: Yes (Hospitalization, Other)
  Sender: FDA-Public Use
  Company Number: 2005BH000758

PATIENT
  Age: 39 Year
  Sex: Male

DRUGS (16)
  1. AMIKACIN [Suspect]
     Indication: PYREXIA
     Dosage: 400 MG; EVERY DAY; IVDRI
     Route: 041
     Dates: start: 20031018, end: 20031018
  2. AMIKACIN [Suspect]
     Indication: PYREXIA
     Dosage: 400 MG; EVERY DAY; IVDRI
     Route: 041
     Dates: start: 20031110, end: 20031110
  3. CLADRIBINE [Suspect]
     Indication: HAIRY CELL LEUKAEMIA
     Dosage: 8 MG; EVERY DAY; IVDRI
     Route: 041
     Dates: start: 20000926, end: 20030930
  4. MICAFUNGIN SODIUM (MICAFUNGIN SODIUM) [Suspect]
     Indication: PYREXIA
     Dosage: 150 MG; EVERY DAY; IVDRI
     Route: 041
     Dates: start: 20031020, end: 20031020
  5. MICAFUNGIN SODIUM (MICAFUNGIN SODIUM) [Suspect]
     Indication: PYREXIA
     Dosage: 150 MG; EVERY DAY; IVDRI
     Route: 041
     Dates: start: 20031110, end: 20031110
  6. CEFOZOPRAN HYDROCHLORIDE (CEFOZOPRAN HYDROCHLORIDE) [Suspect]
     Indication: PYREXIA
     Dosage: 4 GM; EVERY DAY; IVDRI
     Route: 041
     Dates: start: 20031014, end: 20031014
  7. MEROPENEM TRIHYDRATE (MEROPENEM TRIHYDRATE) [Suspect]
     Indication: PYREXIA
     Dosage: 2 GM; EVERY DAY; IVDRI
     Route: 041
     Dates: start: 20031020, end: 20031020
  8. MEROPENEM TRIHYDRATE (MEROPENEM TRIHYDRATE) [Suspect]
     Indication: PYREXIA
     Dosage: 2 GM; EVERY DAY; IVDRI
     Route: 041
     Dates: start: 20031110, end: 20031110
  9. CEFTAZIDIME SODIUM [Suspect]
     Indication: PYREXIA
     Dosage: 4 GM; EVERY DAY; IVDRI
     Route: 041
     Dates: start: 20031107, end: 20031107
  10. MINOCYCLINE HYDROCHLORIDE [Suspect]
     Indication: PYREXIA
     Dosage: 200 MG; EVERY DAY; IVDRI
     Route: 041
     Dates: start: 20031107, end: 20031107
  11. FLUCONAZOLE [Concomitant]
  12. FAMOTIDINE [Concomitant]
  13. SULFAMETHOXAZOLE + TRIMETHOPRIM [Concomitant]
  14. ZOPICLONE [Concomitant]
  15. LOXOPROFEN SODIUM [Concomitant]
  16. TEPRENONE [Concomitant]

REACTIONS (21)
  - ANOREXIA [None]
  - ASPARTATE AMINOTRANSFERASE INCREASED [None]
  - BLOOD ALKALINE PHOSPHATASE INCREASED [None]
  - BLOOD CHLORIDE DECREASED [None]
  - BLOOD LACTATE DEHYDROGENASE INCREASED [None]
  - BLOOD POTASSIUM INCREASED [None]
  - BLOOD SODIUM DECREASED [None]
  - C-REACTIVE PROTEIN INCREASED [None]
  - CONDITION AGGRAVATED [None]
  - ELECTROLYTE IMBALANCE [None]
  - GAMMA-GLUTAMYLTRANSFERASE INCREASED [None]
  - GASTRITIS [None]
  - HEPATIC FUNCTION ABNORMAL [None]
  - HEPATIC STEATOSIS [None]
  - HEPATOCELLULAR DAMAGE [None]
  - HYPOALBUMINAEMIA [None]
  - HYPOCALCAEMIA [None]
  - HYPOPROTEINAEMIA [None]
  - INSOMNIA [None]
  - PANCYTOPENIA [None]
  - PYREXIA [None]
